FAERS Safety Report 8265300-6 (Version None)
Quarter: 2012Q2

REPORT INFORMATION
  Report Type: 
  Country: None (occurrence: None)
  Receive Date: 20120406
  Receipt Date: 20120326
  Transmission Date: 20120825
  Serious: Yes (Other)
  Sender: FDA-Public Use
  Company Number: US-BRISTOL-MYERS SQUIBB COMPANY-16506503

PATIENT
  Age: 36 Year
  Sex: Female

DRUGS (2)
  1. CYCLOPHOSPHAMIDE [Suspect]
     Indication: BREAST CANCER
     Dosage: NO OF CYCLES 4
  2. TAXOTERE [Suspect]
     Indication: BREAST CANCER

REACTIONS (4)
  - HOT FLUSH [None]
  - COGNITIVE DISORDER [None]
  - PERIPHERAL SENSORIMOTOR NEUROPATHY [None]
  - EXTRAVASATION [None]
